FAERS Safety Report 24600268 (Version 3)
Quarter: 2024Q4

REPORT INFORMATION
  Report Type: Spontaneous
  Country: US (occurrence: US)
  Receive Date: 20241110
  Receipt Date: 20241228
  Transmission Date: 20250114
  Serious: No
  Sender: SANOFI AVENTIS
  Company Number: US-SA-2024SA316119

PATIENT
  Age: 51 Year
  Sex: Female

DRUGS (2)
  1. DUPIXENT [Suspect]
     Active Substance: DUPILUMAB
     Indication: Asthma
     Dosage: 600 MG, 1X
     Route: 058
     Dates: start: 20240919, end: 20240919
  2. DUPIXENT [Suspect]
     Active Substance: DUPILUMAB
     Dosage: 300 MG, QOW
     Route: 058
     Dates: start: 20241004

REACTIONS (22)
  - Arthropathy [Unknown]
  - Gait disturbance [Unknown]
  - Thyroid mass [Unknown]
  - Swollen tear duct [Unknown]
  - Fatigue [Unknown]
  - Arthritis [Unknown]
  - Skin swelling [Unknown]
  - Somnolence [Unknown]
  - Injection site discharge [Unknown]
  - Injection site rash [Unknown]
  - Back pain [Unknown]
  - Neck pain [Unknown]
  - Erythema [Unknown]
  - Injection site erythema [Unknown]
  - Injection site reaction [Unknown]
  - Injection site swelling [Unknown]
  - Injection site pain [Unknown]
  - Eye irritation [Unknown]
  - Rash [Unknown]
  - Eye pruritus [Unknown]
  - Dry eye [Unknown]
  - Arthralgia [Unknown]

NARRATIVE: CASE EVENT DATE: 20240101
